FAERS Safety Report 8190715-4 (Version None)
Quarter: 2012Q1

REPORT INFORMATION
  Report Type: 
  Country: None (occurrence: None)
  Receive Date: 20120307
  Receipt Date: 20120229
  Transmission Date: 20120608
  Serious: Yes (Other)
  Sender: FDA-Public Use
  Company Number: US-ROCHE-783667

PATIENT
  Sex: Female
  Weight: 38.59 kg

DRUGS (1)
  1. ACCUTANE [Suspect]
     Indication: ACNE
     Route: 065
     Dates: start: 19990401, end: 19991101

REACTIONS (3)
  - INFLAMMATORY BOWEL DISEASE [None]
  - CROHN'S DISEASE [None]
  - STRESS [None]
